FAERS Safety Report 5264165-4 (Version None)
Quarter: 2007Q1

REPORT INFORMATION
  Report Type: 
  Country: None (occurrence: None)
  Receive Date: 20070313
  Receipt Date: 20070306
  Transmission Date: 20070707
  Serious: Yes (Hospitalization)
  Sender: FDA-Public Use
  Company Number: FR-BOEHRINGER INGELHEIM GMBH, GERMANY-2006-FF-01427FF

PATIENT
  Sex: Male
  Weight: 58 kg

DRUGS (7)
  1. SPIRIVA [Suspect]
     Indication: CHRONIC OBSTRUCTIVE PULMONARY DISEASE
     Route: 055
  2. ORAL ANTICOAGULANT [Suspect]
     Indication: ATRIAL FIBRILLATION
     Route: 048
  3. CORTANCYL [Concomitant]
  4. MIFLASONE [Concomitant]
  5. PREVISCAN [Concomitant]
  6. BI-TILDIEM [Concomitant]
  7. ISOPTIN [Concomitant]

REACTIONS (3)
  - BLADDER DISTENSION [None]
  - HAEMATURIA [None]
  - URINARY RETENTION [None]
